FAERS Safety Report 19474983 (Version 1)
Quarter: 2021Q2

REPORT INFORMATION
  Report Type: Spontaneous
  Country: US (occurrence: US)
  Receive Date: 20210630
  Receipt Date: 20210630
  Transmission Date: 20210717
  Serious: Yes (Hospitalization)
  Sender: FDA-Public Use
  Company Number: US-PINNACLE BIOLOGICS INC-2021-CLI-000013

PATIENT
  Age: 72 Year
  Sex: Female

DRUGS (3)
  1. PHOTOFRIN [Suspect]
     Active Substance: PORFIMER SODIUM
     Indication: SQUAMOUS CELL CARCINOMA
  2. PHOTOFRIN [Suspect]
     Active Substance: PORFIMER SODIUM
     Indication: OBSTRUCTIVE AIRWAYS DISORDER
  3. PEMBROLIZUMAB. [Concomitant]
     Active Substance: PEMBROLIZUMAB
     Indication: PRODUCT USED FOR UNKNOWN INDICATION

REACTIONS (1)
  - Chronic obstructive pulmonary disease [Unknown]
